FAERS Safety Report 7030952-5 (Version None)
Quarter: 2010Q4

REPORT INFORMATION
  Report Type: 
  Country: None (occurrence: None)
  Receive Date: 20101006
  Receipt Date: 20090914
  Transmission Date: 20110411
  Serious: Yes (Other)
  Sender: FDA-Public Use
  Company Number: US-BRISTOL-MYERS SQUIBB COMPANY-14737878

PATIENT
  Age: 61 Year
  Sex: Female

DRUGS (2)
  1. KENALOG-40 [Suspect]
     Indication: ARTHRITIS
     Dosage: 1DF-1CC, ROA: RIGHT KNEE INJECTION
     Route: 014
     Dates: start: 20090727
  2. LIDOCAINE [Suspect]
     Dosage: LIDOCAINE 1%

REACTIONS (1)
  - INJECTION SITE REACTION [None]
